FAERS Safety Report 8385609-5 (Version None)
Quarter: 2012Q2

REPORT INFORMATION
  Report Type: 
  Country: None (occurrence: None)
  Receive Date: 20120525
  Receipt Date: 20120521
  Transmission Date: 20120825
  Serious: No
  Sender: FDA-Public Use
  Company Number: US-PFIZER INC-2012087492

PATIENT
  Sex: Male
  Weight: 137 kg

DRUGS (16)
  1. NAPROXEN (ALEVE) [Suspect]
     Indication: PAIN
     Dosage: 220 MG, 2X/DAY
     Dates: start: 20120301, end: 20120406
  2. CRESTOR [Concomitant]
     Indication: BLOOD CHOLESTEROL ABNORMAL
     Dosage: 10 MG, UNK
  3. ACETYLSALICYLIC ACID SRT [Suspect]
     Indication: ROUTINE HEALTH MAINTENANCE
     Dosage: 81 MG, UNK
     Dates: end: 20120406
  4. NAPROXEN (ALEVE) [Suspect]
     Indication: MUSCLE TIGHTNESS
  5. IRON [Concomitant]
     Dosage: UNKN, DAILY
  6. DIOVAN [Concomitant]
     Indication: BLOOD PRESSURE ABNORMAL
     Dosage: UNK
  7. FLECTOR [Suspect]
     Indication: PAIN
     Dosage: UNK ,TWO TIMES A DAY
     Dates: start: 20120301, end: 20120406
  8. POTASSIUM CITRATE [Concomitant]
     Indication: BLOOD POTASSIUM DECREASED
  9. POTASSIUM CITRATE [Concomitant]
     Indication: PROPHYLAXIS
     Dosage: 15 MEQ, DAILY
  10. ALPHA LIPOIC ACID [Concomitant]
     Dosage: 400 MG, DAILY
  11. FLECTOR [Suspect]
     Indication: MUSCLE TIGHTNESS
  12. VITAMIN D [Concomitant]
     Indication: VITAMIN D
     Dosage: UNK, WEEKLY
  13. ACETYLCARNITINE [Concomitant]
     Dosage: 400 MG, DAILY
  14. METFORMIN [Concomitant]
     Indication: DIABETES MELLITUS
     Dosage: 1000 MG, UNK
  15. GLIMEPIRIDE [Concomitant]
     Indication: DIABETES MELLITUS
     Dosage: 4 MG, UNK
  16. TOPROL-XL [Concomitant]
     Dosage: 50 MG, UNK

REACTIONS (3)
  - MYALGIA [None]
  - MUSCLE SPASMS [None]
  - SLEEP DISORDER [None]
